FAERS Safety Report 9417800 (Version 4)
Quarter: 2014Q1

REPORT INFORMATION
  Report Type: Report from Study
  Country: ZA (occurrence: ZA)
  Receive Date: 20130724
  Receipt Date: 20140318
  Transmission Date: 20141002
  Serious: Yes (Death)
  Sender: FDA-Public Use
  Company Number: ZA-VIIV HEALTHCARE LIMITED-B0910086A

PATIENT
  Age: 18 Year
  Sex: Female
  Weight: 29 kg

DRUGS (4)
  1. MARAVIROC [Suspect]
     Indication: HIV INFECTION
     Dosage: 75MG TWICE PER DAY
     Route: 048
     Dates: start: 20110930, end: 20120216
  2. ZIAGEN [Concomitant]
     Indication: HIV INFECTION
     Dosage: 300MG TWICE PER DAY
     Route: 048
     Dates: start: 20110930
  3. ALUVIA [Concomitant]
     Indication: HIV INFECTION
     Route: 048
     Dates: start: 20110930
  4. LAMIVUDINE-HIV [Concomitant]
     Indication: HIV INFECTION
     Dosage: 150MG TWICE PER DAY
     Route: 048
     Dates: start: 20110930

REACTIONS (1)
  - Pneumonia [Fatal]
